FAERS Safety Report 6979629-2 (Version None)
Quarter: 2010Q3

REPORT INFORMATION
  Report Type: 
  Country: None (occurrence: None)
  Receive Date: 20100910
  Receipt Date: 20100910
  Transmission Date: 20110219
  Serious: No
  Sender: FDA-Public Use
  Company Number: None

PATIENT
  Sex: Female
  Weight: 48.9885 kg

DRUGS (1)
  1. RECLAST [Suspect]

REACTIONS (8)
  - BURNING MOUTH SYNDROME [None]
  - CONDITION AGGRAVATED [None]
  - COUGH [None]
  - FATIGUE [None]
  - HEADACHE [None]
  - LOOSE TOOTH [None]
  - MYALGIA [None]
  - RENAL PAIN [None]
